FAERS Safety Report 23564949 (Version 1)
Quarter: 2024Q1

REPORT INFORMATION
  Report Type: Report from Study
  Country: DE (occurrence: DE)
  Receive Date: 20240226
  Receipt Date: 20240226
  Transmission Date: 20240410
  Serious: Yes (Hospitalization, Other)
  Sender: FDA-Public Use
  Company Number: DE-CELLTRION INC.-2024DE004194

PATIENT

DRUGS (19)
  1. INFLIXIMAB [Suspect]
     Active Substance: INFLIXIMAB
     Indication: Axial spondyloarthritis
     Dosage: 5 MG ONCE A WEEK
     Route: 048
     Dates: start: 20120404
  2. INFLIXIMAB [Suspect]
     Active Substance: INFLIXIMAB
     Indication: Ankylosing spondylitis
     Dosage: 120 MG, EVERY 2 WEEKS
     Route: 065
     Dates: start: 20211015, end: 20220710
  3. INFLIXIMAB [Suspect]
     Active Substance: INFLIXIMAB
     Dosage: 5 MG, ONCE A WEEK (DURATION OF REGIMEN: 6.852 YEARS)
     Route: 048
     Dates: start: 20120101, end: 20181105
  4. INFLIXIMAB [Suspect]
     Active Substance: INFLIXIMAB
     Dosage: 120 MG, EVERY 2 WEEKS
     Route: 065
     Dates: start: 20210915, end: 20210930
  5. METHOTREXATE SODIUM [Suspect]
     Active Substance: METHOTREXATE SODIUM
     Indication: Ankylosing spondylitis
     Dosage: 10 MG
     Route: 048
     Dates: start: 20120101
  6. METHOTREXATE SODIUM [Suspect]
     Active Substance: METHOTREXATE SODIUM
     Dosage: UNK
     Route: 048
     Dates: start: 20210915
  7. METHOTREXATE SODIUM [Suspect]
     Active Substance: METHOTREXATE SODIUM
     Dosage: 5 MG, ONCE A WEEK (DURATION OF REGIMEN: 6.879 YEARS)
     Route: 048
     Dates: start: 20120101, end: 20181115
  8. METHOTREXATE SODIUM [Suspect]
     Active Substance: METHOTREXATE SODIUM
     Dosage: 5 MG, ONCE A WEEK
     Route: 048
     Dates: start: 20190404
  9. NAPROXEN [Suspect]
     Active Substance: NAPROXEN
     Indication: Axial spondyloarthritis
     Dosage: 500 MG, ONCE A DAY (DURATION OF REGIMEN: 1.104 YEARS)
     Route: 065
     Dates: start: 20210608, end: 20220715
  10. SIMPONI [Suspect]
     Active Substance: GOLIMUMAB
     Indication: Ankylosing spondylitis
     Dosage: 50 MG EVERY 28 DAYS (DURATION OF REGIMEN: 1.622 YEARS)
     Route: 058
     Dates: start: 20180226, end: 20191010
  11. SIMPONI [Suspect]
     Active Substance: GOLIMUMAB
     Indication: Axial spondyloarthritis
     Dosage: 50 MG EVERY 28 DAYS (DURATION OF REGIMEN: 1.038 YEARS)
     Route: 058
     Dates: start: 20200502, end: 20210515
  12. SIMPONI [Suspect]
     Active Substance: GOLIMUMAB
     Dosage: 100 MG EVERY 28 DAYS
     Route: 058
     Dates: start: 20210615, end: 20210815
  13. SIMPONI [Suspect]
     Active Substance: GOLIMUMAB
     Dosage: 50 MG EVERY 6 WEEKS (DURATION OF REGIMEN:2.822 YEARS)
     Route: 058
     Dates: start: 20191128
  14. CELECOXIB [Suspect]
     Active Substance: CELECOXIB
     Indication: Axial spondyloarthritis
     Dosage: 800 MG EVERY 0.14 WEEK
     Route: 065
     Dates: start: 20190101, end: 20190501
  15. CELECOXIB [Suspect]
     Active Substance: CELECOXIB
     Indication: Ankylosing spondylitis
     Dosage: 200 MG EVERY 0.14 WEEK
     Route: 065
     Dates: start: 20191107, end: 20201215
  16. CELECOXIB [Suspect]
     Active Substance: CELECOXIB
     Dosage: 200 MG EVERY 0.14 WEEK
     Route: 065
     Dates: start: 20170918, end: 20181105
  17. INFLECTRA [Suspect]
     Active Substance: INFLIXIMAB-DYYB
     Indication: Ankylosing spondylitis
     Dosage: 400 MG
     Route: 065
     Dates: start: 20220807
  18. INFLECTRA [Suspect]
     Active Substance: INFLIXIMAB-DYYB
     Indication: Axial spondyloarthritis
  19. ACEMETACIN [Concomitant]
     Active Substance: ACEMETACIN
     Indication: Product used for unknown indication
     Dosage: UNK
     Route: 065
     Dates: start: 20181105, end: 20181108

REACTIONS (20)
  - Axial spondyloarthritis [Recovered/Resolved]
  - Postoperative adhesion [Recovered/Resolved]
  - Hypertonic bladder [Unknown]
  - Intervertebral disc protrusion [Recovered/Resolved]
  - Rotator cuff syndrome [Recovered/Resolved]
  - Osteochondrosis [Recovered/Resolved]
  - Residual urine volume increased [Recovered/Resolved]
  - Polyarthritis [Unknown]
  - Back pain [Recovered/Resolved]
  - Multiple sclerosis [Unknown]
  - Functional gastrointestinal disorder [Unknown]
  - Gastritis [Unknown]
  - Ovarian cyst [Unknown]
  - Rash [Unknown]
  - Urinary tract infection [Unknown]
  - Laryngitis [Unknown]
  - Upper respiratory tract infection [Unknown]
  - Off label use [Unknown]
  - Intentional product use issue [Unknown]
  - Intentional product use issue [Unknown]

NARRATIVE: CASE EVENT DATE: 20190304
